FAERS Safety Report 11315819 (Version 1)
Quarter: 2015Q3

REPORT INFORMATION
  Report Type: Report from Study
  Country: FR (occurrence: FR)
  Receive Date: 20150728
  Receipt Date: 20150728
  Transmission Date: 20151125
  Serious: Yes (Other)
  Sender: FDA-Public Use
  Company Number: FR-ACCORD-032462

PATIENT
  Age: 3 Year

DRUGS (5)
  1. DACTINOMYCIN [Suspect]
     Active Substance: DACTINOMYCIN
     Indication: NEPHROBLASTOMA
     Dosage: INITIALLY RECEIVED, THEN RECEIVED DURING 7 MONTHS FOLLOWING SURGERY.?REDUCED TO 2/3.
  2. CARBOPLATIN. [Suspect]
     Active Substance: CARBOPLATIN
     Indication: NEPHROBLASTOMA
     Dosage: RECEIVED 2 CYCLES
  3. DOXORUBICIN [Suspect]
     Active Substance: DOXORUBICIN
     Indication: NEPHROBLASTOMA
     Dosage: RECEIVED DURING 7 MONTHS FOLLOWING SURGERY.?REDUCED TO 1/3.
  4. ETOPOSIDE. [Suspect]
     Active Substance: ETOPOSIDE
     Indication: NEPHROBLASTOMA
     Dosage: RECEIVED 2 CYCLES
  5. VINCRISTINE [Suspect]
     Active Substance: VINCRISTINE
     Indication: NEPHROBLASTOMA
     Dosage: INITIALLY RECEIVED, THEN RECEIVED DURING 7 MONTHS FOLLOWING SURGERY.?REDUCED TO 2/3.

REACTIONS (2)
  - Off label use [Unknown]
  - Aplasia [Unknown]
